FAERS Safety Report 18481985 (Version 1)
Quarter: 2020Q4

REPORT INFORMATION
  Report Type: Report from Study
  Country: JP (occurrence: JP)
  Receive Date: 20201109
  Receipt Date: 20201109
  Transmission Date: 20210114
  Serious: Yes (Other)
  Sender: FDA-Public Use
  Company Number: JP-ASTRAZENECA-2020SF43711

PATIENT
  Age: 67 Year
  Sex: Female

DRUGS (1)
  1. GEFITINIB. [Suspect]
     Active Substance: GEFITINIB
     Indication: NON-SMALL CELL LUNG CANCER STAGE IIIB
     Route: 048

REACTIONS (3)
  - Drug ineffective [Unknown]
  - Hepatic function abnormal [Unknown]
  - EGFR gene mutation [Unknown]
